FAERS Safety Report 5320433-9 (Version None)
Quarter: 2007Q2

REPORT INFORMATION
  Report Type: 
  Country: None (occurrence: None)
  Receive Date: 20070509
  Receipt Date: 20070427
  Transmission Date: 20071010
  Serious: Yes (Other)
  Sender: FDA-Public Use
  Company Number: GB-ROCHE-492741

PATIENT
  Age: 18 Year
  Weight: 68 kg

DRUGS (3)
  1. XENICAL [Suspect]
     Indication: DRUG USE FOR UNKNOWN INDICATION
     Route: 065
  2. EPILIM [Interacting]
     Indication: EPILEPSY
     Route: 048
     Dates: start: 20040207, end: 20070215
  3. EPILIM [Interacting]
     Route: 048
     Dates: start: 20070215

REACTIONS (2)
  - CONVULSION [None]
  - DRUG INTERACTION [None]
